FAERS Safety Report 24206223 (Version 1)
Quarter: 2024Q3

REPORT INFORMATION
  Report Type: Spontaneous
  Country: AU (occurrence: AU)
  Receive Date: 20240813
  Receipt Date: 20240813
  Transmission Date: 20241016
  Serious: Yes (Other)
  Sender: ASCEND
  Company Number: AU-Ascend Therapeutics US, LLC-2160360

PATIENT
  Age: 25 Year
  Sex: Female

DRUGS (4)
  1. ANDROGEL [Suspect]
     Active Substance: TESTOSTERONE
     Indication: Gender reassignment therapy
     Route: 061
  2. TESTOSTERONE [Suspect]
     Active Substance: TESTOSTERONE
     Route: 061
  3. OLANZAPINE [Concomitant]
     Active Substance: OLANZAPINE
     Route: 048
  4. LITHIUM [Suspect]
     Active Substance: LITHIUM
     Route: 065

REACTIONS (6)
  - Catatonia [Unknown]
  - Product use issue [Unknown]
  - Product use in unapproved indication [Unknown]
  - Therapeutic response unexpected [Unknown]
  - Toxicity to various agents [Unknown]
  - Condition aggravated [Unknown]
